FAERS Safety Report 5896793-7 (Version None)
Quarter: 2008Q3

REPORT INFORMATION
  Report Type: 
  Country: None (occurrence: None)
  Receive Date: 20080924
  Receipt Date: 20071206
  Transmission Date: 20090109
  Serious: Yes (Other)
  Sender: FDA-Public Use
  Company Number: US-ASTRAZENECA-2007UW27904

PATIENT
  Age: 16 Year
  Sex: Male

DRUGS (1)
  1. SEROQUEL [Suspect]
     Dosage: 6X300MG IR
     Route: 048

REACTIONS (1)
  - OVERDOSE [None]
